FAERS Safety Report 20212585 (Version 1)
Quarter: 2021Q4

REPORT INFORMATION
  Report Type: Spontaneous
  Country: US (occurrence: None)
  Receive Date: 20211221
  Receipt Date: 20211221
  Transmission Date: 20220303
  Serious: Yes (Other)
  Sender: FDA-Public Use
  Company Number: None

PATIENT
  Age: 56 Year
  Sex: Female
  Weight: 104.53 kg

DRUGS (23)
  1. BRAFTOVI [Suspect]
     Active Substance: ENCORAFENIB
     Indication: Malignant melanoma
     Dosage: FREQUENCY : DAILY;?
     Route: 048
     Dates: start: 20200703
  2. MEKTOVI [Suspect]
     Active Substance: BINIMETINIB
     Indication: Malignant melanoma
     Dosage: FREQUENCY : TWICE A DAY;?
     Route: 048
     Dates: start: 20200703
  3. BACTRIM DS [Concomitant]
     Active Substance: SULFAMETHOXAZOLE\TRIMETHOPRIM
  4. IRON [Concomitant]
     Active Substance: IRON
  5. ONDANSETRON [Concomitant]
     Active Substance: ONDANSETRON
  6. COENZYME Q10 [Concomitant]
     Active Substance: DIETARY SUPPLEMENT\UBIDECARENONE
  7. SELENIUM [Concomitant]
     Active Substance: SELENIUM
  8. VITAMIN D [Concomitant]
     Active Substance: VITAMIN D NOS
  9. FLAXSEED [Concomitant]
     Active Substance: FLAX SEED
  10. BETA GLUCAN [Concomitant]
     Active Substance: BETA GLUCAN
  11. ZINC [Concomitant]
     Active Substance: ZINC
  12. VITAMIN C [Concomitant]
     Active Substance: ASCORBIC ACID
  13. CANNABIDIOL [Concomitant]
     Active Substance: CANNABIDIOL
  14. Osteo bi flex [Concomitant]
  15. iodine strong [Concomitant]
  16. FERROUS GLUCONATE [Concomitant]
     Active Substance: FERROUS GLUCONATE
  17. ASPIRIN [Concomitant]
     Active Substance: ASPIRIN
  18. PANTOTHENIC ACID [Concomitant]
     Active Substance: PANTOTHENIC ACID
  19. VITAMINS [Concomitant]
     Active Substance: VITAMINS
  20. TRAMADOL [Concomitant]
     Active Substance: TRAMADOL
  21. VITAMIN E [Concomitant]
     Active Substance: .ALPHA.-TOCOPHEROL
  22. HYALURONIC ACID [Concomitant]
     Active Substance: HYALURONIC ACID
  23. CALCIUM [Concomitant]
     Active Substance: CALCIUM

REACTIONS (2)
  - Anaemia [None]
  - Hypotension [None]

NARRATIVE: CASE EVENT DATE: 20211221
